FAERS Safety Report 7602538-2 (Version None)
Quarter: 2011Q3

REPORT INFORMATION
  Report Type: 
  Country: None (occurrence: None)
  Receive Date: 20110707
  Receipt Date: 20110406
  Transmission Date: 20111222
  Serious: Yes (Hospitalization, Other)
  Sender: FDA-Public Use
  Company Number: US-CYPR-2010-000010

PATIENT
  Sex: Male
  Weight: 94.3482 kg

DRUGS (4)
  1. CYPHER STENT [Concomitant]
  2. CLOPIDOGREL [Suspect]
     Indication: ANTIPLATELET THERAPY
     Dosage: 75 MG QD ORAL
     Route: 048
     Dates: start: 20101029, end: 20110113
  3. ASPIRIN [Suspect]
     Indication: THROMBOSIS PROPHYLAXIS
     Dosage: 81 MG QD ORAL
     Route: 048
     Dates: start: 20090907
  4. CRESTOR [Concomitant]

REACTIONS (1)
  - CORONARY REVASCULARISATION [None]
